FAERS Safety Report 17646364 (Version 12)
Quarter: 2021Q2

REPORT INFORMATION
  Report Type: Report from Study
  Country: US (occurrence: US)
  Receive Date: 20200408
  Receipt Date: 20210410
  Transmission Date: 20210716
  Serious: Yes (Other)
  Sender: FDA-Public Use
  Company Number: NVSC2020US094360

PATIENT
  Age: 56 Year
  Sex: Male

DRUGS (6)
  1. ENTRESTO [Suspect]
     Active Substance: SACUBITRIL\VALSARTAN
     Dosage: 50 MG, QD (24/26 MG)
     Route: 048
  2. ENTRESTO [Suspect]
     Active Substance: SACUBITRIL\VALSARTAN
     Indication: CARDIAC FAILURE
     Dosage: 50 MG, BID (24/26 MG)
     Route: 048
     Dates: start: 202003
  3. ENTRESTO [Suspect]
     Active Substance: SACUBITRIL\VALSARTAN
     Dosage: 50 MG, BID (24/26 MG)
     Route: 048
  4. LASIX [Concomitant]
     Active Substance: FUROSEMIDE
     Dosage: 80 MG, UNKNOWN
     Route: 065
  5. LASIX [Concomitant]
     Active Substance: FUROSEMIDE
     Indication: PRODUCT USED FOR UNKNOWN INDICATION
     Dosage: UNK
     Route: 065
  6. ENTRESTO [Suspect]
     Active Substance: SACUBITRIL\VALSARTAN
     Dosage: UNK, BID (49/51 MG)
     Route: 048
     Dates: start: 202003

REACTIONS (17)
  - Anxiety [Unknown]
  - Peripheral swelling [Unknown]
  - Hypotension [Unknown]
  - Diabetes mellitus [Unknown]
  - Depressed mood [Unknown]
  - Depression [Unknown]
  - Prescribed underdose [Unknown]
  - Dyspnoea [Recovered/Resolved]
  - Glycosylated haemoglobin increased [Unknown]
  - Ejection fraction decreased [Not Recovered/Not Resolved]
  - Sleep disorder [Unknown]
  - Abdominal distension [Unknown]
  - Product dose omission issue [Unknown]
  - Fatigue [Unknown]
  - Fluid retention [Not Recovered/Not Resolved]
  - Somnolence [Unknown]
  - Product prescribing error [Unknown]

NARRATIVE: CASE EVENT DATE: 202003
